FAERS Safety Report 25949789 (Version 1)
Quarter: 2025Q4

REPORT INFORMATION
  Report Type: Spontaneous
  Country: EU (occurrence: EU)
  Receive Date: 20251022
  Receipt Date: 20251022
  Transmission Date: 20260118
  Serious: Yes (Other)
  Sender: CIPLA
  Company Number: EU-SEMPA-2025-008422

PATIENT

DRUGS (7)
  1. ESOMEPRAZOLE [Suspect]
     Active Substance: ESOMEPRAZOLE
     Indication: Gastritis
     Dosage: 20 MILLIGRAM, QD, GASTRO-RESISTANT CAPSULE, HARD
     Route: 065
     Dates: start: 20250913, end: 20250918
  2. VENLAFAXIN MEDICAL VALLEY [Concomitant]
     Indication: Product used for unknown indication
     Dosage: UNK
     Route: 065
  3. LEVOTHYROXINE SODIUM [Concomitant]
     Active Substance: LEVOTHYROXINE SODIUM
     Indication: Product used for unknown indication
     Dosage: UNK
     Route: 065
  4. FOLSYRA VITABALANS [Concomitant]
     Indication: Product used for unknown indication
     Dosage: UNK
     Route: 065
  5. KALCIUM/KOLEKALCIFEROL EVOLAN [Concomitant]
     Indication: Product used for unknown indication
     Dosage: UNK
     Route: 065
  6. ALENDRONAT [Concomitant]
     Active Substance: ALENDRONATE SODIUM
     Indication: Product used for unknown indication
     Dosage: UNK
     Route: 065
  7. BETOLVAN [Concomitant]
     Indication: Product used for unknown indication
     Dosage: UNK
     Route: 065

REACTIONS (1)
  - Diplopia [Recovered/Resolved]

NARRATIVE: CASE EVENT DATE: 20250917
